FAERS Safety Report 9046290 (Version 1)
Quarter: 2013Q1

REPORT INFORMATION
  Report Type: Spontaneous
  Country: US (occurrence: None)
  Receive Date: 20130128
  Receipt Date: 20130128
  Transmission Date: 20140127
  Serious: Yes (Hospitalization)
  Sender: FDA-Public Use
  Company Number: None

PATIENT
  Age: 58 Year
  Sex: Male
  Weight: 79.5 kg

DRUGS (2)
  1. IBUPROFEN [Suspect]
     Route: 048
     Dates: start: 20120806, end: 20120808
  2. ASPIRIN [Suspect]
     Route: 048
     Dates: start: 20120806, end: 20120808

REACTIONS (2)
  - Gastric haemorrhage [None]
  - Upper gastrointestinal haemorrhage [None]
